FAERS Safety Report 20337371 (Version 1)
Quarter: 2022Q1

REPORT INFORMATION
  Report Type: Spontaneous
  Country: US (occurrence: US)
  Receive Date: 20220114
  Receipt Date: 20220114
  Transmission Date: 20220423
  Serious: No
  Sender: FDA-Public Use
  Company Number: US-SA-SAC20220108000006

PATIENT
  Age: 56 Year
  Sex: Female

DRUGS (1)
  1. KEVZARA [Suspect]
     Active Substance: SARILUMAB
     Indication: Rheumatoid arthritis
     Dosage: 200MG/1.14ML, 200 MG, QOW
     Route: 058
     Dates: start: 20211214

REACTIONS (3)
  - Oral herpes [Unknown]
  - Paraesthesia [Unknown]
  - Herpes simplex reactivation [Unknown]

NARRATIVE: CASE EVENT DATE: 20211201
